FAERS Safety Report 11273356 (Version 1)
Quarter: 2015Q3

REPORT INFORMATION
  Report Type: Spontaneous
  Country: US (occurrence: US)
  Receive Date: 20150715
  Receipt Date: 20150715
  Transmission Date: 20151125
  Serious: No
  Sender: FDA-Public Use
  Company Number: US-BAUSCH-BL-2014-011787

PATIENT
  Age: 71 Year
  Sex: Female

DRUGS (5)
  1. DUREZOL [Suspect]
     Active Substance: DIFLUPREDNATE
     Indication: CATARACT OPERATION
     Route: 047
  2. SUCRALFATE. [Concomitant]
     Active Substance: SUCRALFATE
     Indication: PRODUCT USED FOR UNKNOWN INDICATION
  3. BESIVANCE [Suspect]
     Active Substance: BESIFLOXACIN
     Route: 047
     Dates: start: 201412, end: 20141229
  4. PROLENSA [Suspect]
     Active Substance: BROMFENAC SODIUM
     Indication: CATARACT OPERATION
     Route: 047
     Dates: start: 20141213
  5. BESIVANCE [Suspect]
     Active Substance: BESIFLOXACIN
     Indication: CATARACT OPERATION
     Route: 047
     Dates: start: 20141213, end: 201412

REACTIONS (3)
  - Urinary tract infection [Unknown]
  - Chromaturia [Not Recovered/Not Resolved]
  - Off label use [None]

NARRATIVE: CASE EVENT DATE: 20141213
